FAERS Safety Report 9363613 (Version 1)
Quarter: 2013Q2

REPORT INFORMATION
  Report Type: Spontaneous
  Country: US (occurrence: US)
  Receive Date: 20130624
  Receipt Date: 20130624
  Transmission Date: 20140414
  Serious: Yes (Other)
  Sender: FDA-Public Use
  Company Number: PHEH2013US013471

PATIENT
  Sex: Female

DRUGS (2)
  1. DIOVAN HCT [Suspect]
     Dosage: 1 DF, (320 MG VALS AND 25 MG AMLO) ONCE DAILY
     Route: 048
  2. METOPROLOL [Concomitant]

REACTIONS (1)
  - HIV infection [Unknown]
